FAERS Safety Report 25043229 (Version 3)
Quarter: 2025Q4

REPORT INFORMATION
  Report Type: Spontaneous
  Country: JP (occurrence: JP)
  Receive Date: 20250305
  Receipt Date: 20251030
  Transmission Date: 20260117
  Serious: Yes (Other)
  Sender: BRISTOL-MYERS SQUIBB COMPANY
  Company Number: JP-BRISTOL-MYERS SQUIBB COMPANY-2025-032731

PATIENT
  Age: 7 Decade
  Sex: Male

DRUGS (3)
  1. YERVOY [Suspect]
     Active Substance: IPILIMUMAB
     Indication: Product used for unknown indication
     Route: 041
  2. OPDIVO [Suspect]
     Active Substance: NIVOLUMAB
     Indication: Product used for unknown indication
  3. OPDIVO [Suspect]
     Active Substance: NIVOLUMAB
     Dosage: TRANSITION TO NIVOLUMAB MONOTHERAPY

REACTIONS (4)
  - Septic pulmonary embolism [Unknown]
  - Oxygen saturation decreased [Recovering/Resolving]
  - Malignant neoplasm progression [Unknown]
  - Inflammation [Unknown]

NARRATIVE: CASE EVENT DATE: 20240601
